FAERS Safety Report 4464278-0 (Version None)
Quarter: 2004Q4

REPORT INFORMATION
  Report Type: 
  Country: None (occurrence: None)
  Receive Date: 20041001
  Receipt Date: 20040922
  Transmission Date: 20050328
  Serious: Yes (Life-Threatening, Other)
  Sender: FDA-Public Use
  Company Number: PHBS2004JP12671

PATIENT
  Age: 64 Year
  Sex: Male

DRUGS (2)
  1. VOLTAREN [Suspect]
     Indication: PYREXIA
     Route: 048
     Dates: start: 20040101, end: 20040101
  2. ANTIBIOTICS [Suspect]
     Indication: MALAISE
     Route: 065
     Dates: start: 20040101, end: 20040101

REACTIONS (10)
  - ANAPHYLACTIC SHOCK [None]
  - BLOOD CREATININE INCREASED [None]
  - BLOOD PRESSURE DECREASED [None]
  - C-REACTIVE PROTEIN INCREASED [None]
  - DEPRESSED LEVEL OF CONSCIOUSNESS [None]
  - INFLAMMATION [None]
  - OLIGURIA [None]
  - PLATELET COUNT DECREASED [None]
  - PYREXIA [None]
  - SEPTIC SHOCK [None]
